FAERS Safety Report 24724691 (Version 2)
Quarter: 2024Q4

REPORT INFORMATION
  Report Type: Spontaneous
  Country: US (occurrence: US)
  Receive Date: 20241212
  Receipt Date: 20241212
  Transmission Date: 20250115
  Serious: Yes (Hospitalization)
  Sender: ROCHE
  Company Number: US-ROCHE-10000148778

PATIENT

DRUGS (2)
  1. GAZYVA [Suspect]
     Active Substance: OBINUTUZUMAB
     Indication: Product used for unknown indication
     Dosage: FIRST DAY DOSE IS 100MG AND THE SECOND DAY THE DOSE IS 900MG
     Route: 065
     Dates: start: 20241202
  2. GAZYVA [Suspect]
     Active Substance: OBINUTUZUMAB
     Dosage: FIRST DAY DOSE IS 100MG AND THE SECOND DAY THE DOSE IS 900MG
     Route: 065
     Dates: start: 20241203

REACTIONS (3)
  - Blood test abnormal [Unknown]
  - Chills [Unknown]
  - Tremor [Unknown]

NARRATIVE: CASE EVENT DATE: 20241202
